FAERS Safety Report 7359093-4 (Version None)
Quarter: 2011Q1

REPORT INFORMATION
  Report Type: 
  Country: None (occurrence: None)
  Receive Date: 20110317
  Receipt Date: 20110310
  Transmission Date: 20110831
  Serious: Yes (Death, Disabling)
  Sender: FDA-Public Use
  Company Number: JP-MPIJNJ-2011-00353

PATIENT

DRUGS (5)
  1. VELCADE [Suspect]
     Indication: MULTIPLE MYELOMA
     Dosage: 1.3 MG/M2, CYCLIC
     Route: 042
     Dates: start: 20101203, end: 20101210
  2. PREDNISOLONE [Suspect]
     Indication: MULTIPLE MYELOMA
     Route: 065
  3. WARFARIN [Concomitant]
     Route: 048
  4. MELPHALAN HYDROCHLORIDE [Suspect]
     Indication: MULTIPLE MYELOMA
     Route: 065
  5. DECADRON [Concomitant]
     Indication: MULTIPLE MYELOMA
     Dosage: 20 MG, UNK
     Route: 042
     Dates: start: 20101203, end: 20101211

REACTIONS (2)
  - PLATELET COUNT DECREASED [None]
  - SEPSIS [None]
